FAERS Safety Report 6766766-0 (Version None)
Quarter: 2010Q2

REPORT INFORMATION
  Report Type: 
  Country: None (occurrence: None)
  Receive Date: 20100611
  Receipt Date: 20100603
  Transmission Date: 20101027
  Serious: Yes (Hospitalization)
  Sender: FDA-Public Use
  Company Number: AU-NOVOPROD-309528

PATIENT
  Age: 81 Year
  Sex: Male
  Weight: 95 kg

DRUGS (2)
  1. NOVOMIX 30 FLEXPEN [Suspect]
     Indication: TYPE 2 DIABETES MELLITUS
     Dosage: 146 U, QD
  2. ENDONE [Concomitant]
     Indication: DRUG USE FOR UNKNOWN INDICATION

REACTIONS (4)
  - BACK PAIN [None]
  - STAPHYLOCOCCAL ABSCESS [None]
  - TOE AMPUTATION [None]
  - TREMOR [None]
